FAERS Safety Report 15681431 (Version 1)
Quarter: 2018Q4

REPORT INFORMATION
  Report Type: Spontaneous
  Country: US (occurrence: US)
  Receive Date: 20181120
  Receipt Date: 20181120
  Transmission Date: 20190205
  Serious: Yes (Hospitalization)
  Sender: FDA-Public Use
  Company Number: None

PATIENT
  Age: 38 Year
  Sex: Female
  Weight: 70.2 kg

DRUGS (2)
  1. XARELTO [Suspect]
     Active Substance: RIVAROXABAN
  2. ELIQUIS [Suspect]
     Active Substance: APIXABAN
     Indication: PULMONARY EMBOLISM
     Dosage: ?          QUANTITY:1 DF DOSAGE FORM;?
     Route: 048
     Dates: start: 20181003, end: 20181003

REACTIONS (16)
  - Muscle spasms [None]
  - Myoclonus [None]
  - Nausea [None]
  - Asthenia [None]
  - Eye pain [None]
  - Cognitive disorder [None]
  - Confusional state [None]
  - Migraine [None]
  - Agitation [None]
  - Facial paralysis [None]
  - Dizziness [None]
  - Hemiparesis [None]
  - Muscle rigidity [None]
  - Paraesthesia [None]
  - Hypoaesthesia [None]
  - Product formulation issue [None]

NARRATIVE: CASE EVENT DATE: 20181003
